FAERS Safety Report 7019150-9 (Version None)
Quarter: 2010Q3

REPORT INFORMATION
  Report Type: 
  Country: None (occurrence: None)
  Receive Date: 20100928
  Receipt Date: 20100921
  Transmission Date: 20110219
  Serious: No
  Sender: FDA-Public Use
  Company Number: GB-ABBOTT-10P-167-0660649-00

PATIENT
  Sex: Male
  Weight: 85.3 kg

DRUGS (2)
  1. HUMIRA [Suspect]
     Indication: ANKYLOSING SPONDYLITIS
     Route: 050
     Dates: start: 20090514, end: 20100501
  2. HUMIRA [Suspect]
     Dates: start: 20100601

REACTIONS (4)
  - ABDOMINAL PAIN [None]
  - BLADDER DISORDER [None]
  - BLOOD URINE PRESENT [None]
  - POLLAKIURIA [None]
